FAERS Safety Report 25033020 (Version 1)
Quarter: 2025Q1

REPORT INFORMATION
  Report Type: Spontaneous
  Country: CA (occurrence: US)
  Receive Date: 20250303
  Receipt Date: 20250303
  Transmission Date: 20250408
  Serious: No
  Sender: NOVO NORDISK
  Company Number: CA-NOVOPROD-1205536

PATIENT

DRUGS (1)
  1. SAXENDA [Suspect]
     Active Substance: LIRAGLUTIDE
     Indication: Product used for unknown indication
     Route: 058

REACTIONS (2)
  - Ill-defined disorder [Recovered/Resolved]
  - Expired product administered [Unknown]
